FAERS Safety Report 23521988 (Version 1)
Quarter: 2024Q1

REPORT INFORMATION
  Report Type: Spontaneous
  Country: US (occurrence: US)
  Receive Date: 20240214
  Receipt Date: 20240214
  Transmission Date: 20240410
  Serious: No
  Sender: FDA-Public Use
  Company Number: US-GLENMARK PHARMACEUTICALS-2023GMK086078

PATIENT

DRUGS (2)
  1. VERAPAMIL [Suspect]
     Active Substance: VERAPAMIL HYDROCHLORIDE
     Indication: Product used for unknown indication
     Dosage: 120 MILLIGRAM, BID (ONE IN THE MORNING AND ONE AT NIGHT)
     Route: 048
  2. VERAPAMIL [Suspect]
     Active Substance: VERAPAMIL HYDROCHLORIDE
     Dosage: 120 MILLIGRAM, BID (ONE IN THE MORNING AND ONE AT NIGHT)
     Route: 048

REACTIONS (4)
  - Product storage error [Unknown]
  - Product colour issue [Unknown]
  - Product quality issue [Unknown]
  - Product physical issue [Unknown]
